FAERS Safety Report 20291020 (Version 1)
Quarter: 2022Q1

REPORT INFORMATION
  Report Type: Spontaneous
  Country: ES (occurrence: ES)
  Receive Date: 20220104
  Receipt Date: 20220104
  Transmission Date: 20220423
  Serious: Yes (Death, Hospitalization, Other)
  Sender: FDA-Public Use
  Company Number: ES-PFIZER INC-202101834452

PATIENT
  Age: 66 Year
  Sex: Male

DRUGS (9)
  1. SPIRONOLACTONE [Suspect]
     Active Substance: SPIRONOLACTONE
     Dosage: 25 MG, 1X/DAY (0-1-0)
  2. ASPIRIN [Concomitant]
     Active Substance: ASPIRIN
     Dosage: 100 MG
  3. SINTROM [Concomitant]
     Active Substance: ACENOCOUMAROL
  4. CARVEDILOL [Concomitant]
     Active Substance: CARVEDILOL
     Dosage: 25 MG, 2X/DAY (1-0-1)
  5. ENALAPRIL [Concomitant]
     Active Substance: ENALAPRIL
     Dosage: 5 MG HALF THE TABLET AT BREAKFAST AND AT DINNER
  6. FUROSEMIDE [Concomitant]
     Active Substance: FUROSEMIDE
     Dosage: 40 MG, 1X/DAY (1-0-0)
  7. SIMVASTATIN [Concomitant]
     Active Substance: SIMVASTATIN
     Dosage: 40 MG
  8. OMEPRAZOLE [Concomitant]
     Active Substance: OMEPRAZOLE
     Dosage: 20 MG
  9. DIGOXIN [Concomitant]
     Active Substance: DIGOXIN
     Dosage: 0.5 MG, 1X/DAY

REACTIONS (10)
  - Septic shock [Fatal]
  - Multiple organ dysfunction syndrome [Fatal]
  - Angiopathy [Fatal]
  - Staphylococcal infection [Unknown]
  - Candida infection [Unknown]
  - Candida infection [Unknown]
  - Acinetobacter infection [Unknown]
  - Shock [Unknown]
  - Thrombosis [Unknown]
  - Peripheral ischaemia [Unknown]

NARRATIVE: CASE EVENT DATE: 20150201
